FAERS Safety Report 4660419-0 (Version None)
Quarter: 2005Q2

REPORT INFORMATION
  Report Type: 
  Country: None (occurrence: None)
  Receive Date: 20050512
  Receipt Date: 20050413
  Transmission Date: 20051028
  Serious: Yes (Other)
  Sender: FDA-Public Use
  Company Number: US-GLAXOSMITHKLINE-A0554027A

PATIENT
  Sex: Female
  Weight: 55 kg

DRUGS (2)
  1. WELLBUTRIN [Suspect]
     Indication: ILL-DEFINED DISORDER
     Route: 048
  2. BIRTH CONTROL PILLS [Concomitant]

REACTIONS (3)
  - AMNESIA [None]
  - AURA [None]
  - CONVULSION [None]
